FAERS Safety Report 6064670-7 (Version None)
Quarter: 2009Q1

REPORT INFORMATION
  Report Type: 
  Country: None (occurrence: None)
  Receive Date: 20090204
  Receipt Date: 20080407
  Transmission Date: 20090719
  Serious: No
  Sender: FDA-Public Use
  Company Number: A0721383A

PATIENT
  Sex: Female

DRUGS (8)
  1. ARIXTRA [Suspect]
     Dosage: 2.5MG PER DAY
     Route: 058
  2. ASPIRIN [Concomitant]
  3. LISINOPRIL [Concomitant]
  4. THYROID TAB [Concomitant]
  5. LACTULOSE [Concomitant]
  6. TOPROL-XL [Concomitant]
  7. DIOVAN [Concomitant]
  8. M.V.I. [Concomitant]

REACTIONS (1)
  - BLOOD URINE PRESENT [None]
